FAERS Safety Report 16089611 (Version 1)
Quarter: 2019Q1

REPORT INFORMATION
  Report Type: Spontaneous
  Country: DE (occurrence: DE)
  Receive Date: 20190319
  Receipt Date: 20190319
  Transmission Date: 20190418
  Serious: Yes (Hospitalization, Other)
  Sender: FDA-Public Use
  Company Number: DE-MYLANLABS-2019M1023949

PATIENT
  Age: 48 Year
  Sex: Female

DRUGS (1)
  1. VALSARTAN. [Suspect]
     Active Substance: VALSARTAN
     Indication: PRODUCT USED FOR UNKNOWN INDICATION
     Dosage: 1 DOSAGE FORM (1 DSF = 80 MILLIGRAM VALSARTAN/ 12.5 MILLIGRAM HYDROCHLOROTHIAZIDE)
     Route: 048

REACTIONS (1)
  - Borderline serous tumour of ovary [Unknown]

NARRATIVE: CASE EVENT DATE: 201407
